FAERS Safety Report 25954540 (Version 1)
Quarter: 2025Q4

REPORT INFORMATION
  Report Type: Spontaneous
  Country: US (occurrence: US)
  Receive Date: 20251024
  Receipt Date: 20251024
  Transmission Date: 20260118
  Serious: No
  Sender: ELI LILLY AND COMPANY
  Company Number: US-ELI_LILLY_AND_COMPANY-US202510017518

PATIENT
  Age: 25 Year
  Sex: Female

DRUGS (2)
  1. OLUMIANT [Suspect]
     Active Substance: BARICITINIB
     Indication: Product used for unknown indication
     Dosage: UNK, UNKNOWN
     Route: 065
  2. LITFULO [Suspect]
     Active Substance: RITLECITINIB TOSYLATE
     Indication: Alopecia areata
     Dosage: UNK UNK, UNKNOWN
     Route: 065

REACTIONS (5)
  - Platelet disorder [Unknown]
  - Contusion [Unknown]
  - Pruritus [Unknown]
  - Burning sensation [Unknown]
  - Eczema [Unknown]
